FAERS Safety Report 19227990 (Version 1)
Quarter: 2021Q2

REPORT INFORMATION
  Report Type: Spontaneous
  Country: US (occurrence: US)
  Receive Date: 20210506
  Receipt Date: 20210506
  Transmission Date: 20210717
  Serious: No
  Sender: FDA-Public Use
  Company Number: US-ROCHE-2723695

PATIENT
  Sex: Male

DRUGS (1)
  1. ESBRIET [Suspect]
     Active Substance: PIRFENIDONE
     Indication: IDIOPATHIC PULMONARY FIBROSIS
     Dosage: TAKE 1 CAPSULE 3 TIMES A DAY FOR 7 DAYS THEN 2 CAPSULE 3 TIMES A DAY FOR 7 DAYS THEN 3 CAPSULE 3 TIM
     Route: 048
     Dates: start: 20201104

REACTIONS (1)
  - Constipation [Unknown]
